FAERS Safety Report 18875063 (Version 1)
Quarter: 2021Q1

REPORT INFORMATION
  Report Type: Spontaneous
  Country: FR (occurrence: FR)
  Receive Date: 20210210
  Receipt Date: 20210210
  Transmission Date: 20210420
  Serious: Yes (Hospitalization)
  Sender: FDA-Public Use
  Company Number: FR-009507513-2102FRA003069

PATIENT
  Age: 59 Year
  Sex: Male

DRUGS (4)
  1. TERALITHE [Suspect]
     Active Substance: LITHIUM CARBONATE
     Indication: BIPOLAR DISORDER
     Route: 048
     Dates: start: 20201231
  2. JANUVIA [Suspect]
     Active Substance: SITAGLIPTIN PHOSPHATE
     Indication: DIABETES MELLITUS
     Route: 048
     Dates: start: 20201230
  3. DIAMICRON [Suspect]
     Active Substance: GLICLAZIDE
     Indication: DIABETES MELLITUS
     Route: 048
     Dates: start: 20201230
  4. LARGACTIL [Suspect]
     Active Substance: CHLORPROMAZINE
     Indication: AGITATION
     Dosage: UNK
     Route: 048
     Dates: start: 20210104

REACTIONS (4)
  - Blood creatine phosphokinase increased [Recovering/Resolving]
  - Hyperleukocytosis [Recovered/Resolved]
  - Confusional state [Recovered/Resolved]
  - Cholestasis [Not Recovered/Not Resolved]

NARRATIVE: CASE EVENT DATE: 20210109
